FAERS Safety Report 18787525 (Version 1)
Quarter: 2021Q1

REPORT INFORMATION
  Report Type: Spontaneous
  Country: US (occurrence: US)
  Receive Date: 20210125
  Receipt Date: 20210125
  Transmission Date: 20210419
  Serious: No
  Sender: FDA-Public Use
  Company Number: US-ROCHE-2670023

PATIENT
  Age: 47 Year
  Sex: Female
  Weight: 157.08 kg

DRUGS (4)
  1. SOLU?MEDROL [Concomitant]
     Active Substance: METHYLPREDNISOLONE SODIUM SUCCINATE
     Dosage: IV PUSH ONCE PRIOR TO EACH INFUSION ;ONGOING: YES
     Route: 040
     Dates: start: 20200326
  2. RITUXAN [Suspect]
     Active Substance: RITUXIMAB
     Indication: RHEUMATOID ARTHRITIS
     Dosage: 2?1000 MG IV INFUSION 2 WEEKS APART EVERY 4 MONTHS ;ONGOING: YES
     Route: 041
     Dates: start: 20200326
  3. BENADRYL [Suspect]
     Active Substance: DIPHENHYDRAMINE HYDROCHLORIDE
     Indication: PREMEDICATION
     Dosage: 25 MG TABLET BY MOUTH ONCE PRIOR TO EACH INFUSION ;ONGOING: YES
     Route: 048
     Dates: start: 20200326
  4. TYLENOL [Concomitant]
     Active Substance: ACETAMINOPHEN
     Dosage: 25 MG TABLET ONCE BY MOUTH PRIOR TO EACH INFUSION ;ONGOING: YES
     Route: 048
     Dates: start: 20200326

REACTIONS (1)
  - Somnolence [Not Recovered/Not Resolved]

NARRATIVE: CASE EVENT DATE: 20200326
